FAERS Safety Report 6934448-8 (Version None)
Quarter: 2010Q3

REPORT INFORMATION
  Report Type: 
  Country: None (occurrence: None)
  Receive Date: 20100820
  Receipt Date: 20100810
  Transmission Date: 20110219
  Serious: Yes (Hospitalization, Other)
  Sender: FDA-Public Use
  Company Number: US-ELI_LILLY_AND_COMPANY-US201008001209

PATIENT
  Sex: Male

DRUGS (7)
  1. HUMULIN 70/30 [Suspect]
     Indication: TYPE 2 DIABETES MELLITUS
  2. HUMULIN 70/30 [Suspect]
     Dosage: 60 U, UNK
  3. HUMULIN 70/30 [Suspect]
     Dosage: 45 U, 3/D
  4. HUMULIN 70/30 [Suspect]
     Dosage: 60 U, UNK
  5. METFORMIN [Concomitant]
     Dosage: 1000 MG, EACH MORNING
  6. METFORMIN [Concomitant]
     Dosage: 1500 MG, EACH EVENING
  7. PREDNISONE [Concomitant]

REACTIONS (7)
  - BLOOD GLUCOSE INCREASED [None]
  - CORONARY ARTERIAL STENT INSERTION [None]
  - DRUG INEFFECTIVE [None]
  - MALAISE [None]
  - MEDICATION ERROR [None]
  - NAUSEA [None]
  - POOR QUALITY DRUG ADMINISTERED [None]
